FAERS Safety Report 10173355 (Version 2)
Quarter: 2014Q2

REPORT INFORMATION
  Report Type: Spontaneous
  Country: US (occurrence: US)
  Receive Date: 20140515
  Receipt Date: 20140616
  Transmission Date: 20141212
  Serious: No
  Sender: FDA-Public Use
  Company Number: US-PFIZER INC-2014131650

PATIENT
  Age: 68 Year
  Sex: Male

DRUGS (5)
  1. CELEBREX [Suspect]
     Dosage: UNK
  2. NEURONTIN [Suspect]
     Dosage: UNK
  3. DIGOXIN [Suspect]
     Dosage: UNK
  4. SIMPONI [Suspect]
     Dosage: UNK
  5. SYMBICORT [Suspect]
     Dosage: UNK

REACTIONS (1)
  - Drug hypersensitivity [Unknown]
